FAERS Safety Report 4661042-4 (Version None)
Quarter: 2005Q2

REPORT INFORMATION
  Report Type: 
  Country: None (occurrence: None)
  Receive Date: 20050511
  Receipt Date: 20050503
  Transmission Date: 20051028
  Serious: Yes (Death)
  Sender: FDA-Public Use
  Company Number: AE050501.ACA

PATIENT
  Age: 74 Year
  Sex: Male
  Weight: 81 kg

DRUGS (1)
  1. AMINOCAPROIC ACID INJECTION 250MG/ML [Suspect]
     Indication: CORONARY ARTERY SURGERY
     Dosage: 2.5 G IV X 1
     Dates: start: 20050419

REACTIONS (3)
  - DIALYSIS [None]
  - POST PROCEDURAL COMPLICATION [None]
  - RENAL FAILURE [None]
